FAERS Safety Report 4607034-2 (Version None)
Quarter: 2005Q1

REPORT INFORMATION
  Report Type: 
  Country: None (occurrence: None)
  Receive Date: 20050309
  Receipt Date: 20050216
  Transmission Date: 20050727
  Serious: Yes (Hospitalization, Other)
  Sender: FDA-Public Use
  Company Number: US_030493862

PATIENT
  Age: 42 Year
  Sex: Female
  Weight: 107 kg

DRUGS (18)
  1. ZYPREXA [Suspect]
     Indication: SCHIZOPHRENIA
     Dosage: 5 MG AT BEDTIME
     Dates: start: 20001206, end: 20010215
  2. ZESTRIL [Concomitant]
  3. ZOLOFT [Concomitant]
  4. ASPIRIN [Concomitant]
  5. DESYREL [Concomitant]
  6. VIOXX [Concomitant]
  7. LOPRESSOR [Concomitant]
  8. CELEBREX [Concomitant]
  9. COMBIVENT [Concomitant]
  10. PEPCID [Concomitant]
  11. ULTRAM [Concomitant]
  12. TRAZODONE HCL [Concomitant]
  13. VISTARIL [Concomitant]
  14. RESTORIL [Concomitant]
  15. FLOVENT [Concomitant]
  16. VENTOLIN (SALBUTAMOL SULFATE) [Concomitant]
  17. COMBIVENT [Concomitant]
  18. SINGULAIR (MONTELUKAST) [Concomitant]

REACTIONS (32)
  - ACIDOSIS [None]
  - ANAEMIA [None]
  - ASTHMA [None]
  - ATELECTASIS [None]
  - BACTERAEMIA [None]
  - BLOOD POTASSIUM INCREASED [None]
  - CATARACT [None]
  - COMA [None]
  - CYSTITIS [None]
  - DIABETES MELLITUS INADEQUATE CONTROL [None]
  - DIARRHOEA [None]
  - DYSPEPSIA [None]
  - HEPATIC STEATOSIS [None]
  - HYPERNATRAEMIA [None]
  - HYPOAESTHESIA [None]
  - HYPOKALAEMIA [None]
  - LARYNGOTRACHEO BRONCHITIS [None]
  - METABOLIC ENCEPHALOPATHY [None]
  - NEUROPATHY [None]
  - PANCREATITIS ACUTE [None]
  - PLANTAR FASCIITIS [None]
  - PNEUMONIA [None]
  - RENAL FAILURE ACUTE [None]
  - RESPIRATORY FAILURE [None]
  - RHABDOMYOLYSIS [None]
  - SPUTUM CULTURE POSITIVE [None]
  - STAPHYLOCOCCAL INFECTION [None]
  - SYSTEMIC INFLAMMATORY RESPONSE SYNDROME [None]
  - TACHYCARDIA [None]
  - THROMBOCYTOPENIA [None]
  - URINARY TRACT INFECTION FUNGAL [None]
  - VAGINAL INFECTION [None]
